FAERS Safety Report 5882450-X (Version None)
Quarter: 2008Q3

REPORT INFORMATION
  Report Type: 
  Country: None (occurrence: None)
  Receive Date: 20080913
  Receipt Date: 20080806
  Transmission Date: 20090109
  Serious: No
  Sender: FDA-Public Use
  Company Number: US-ABBOTT-08P-163-0469090-00

PATIENT
  Sex: Female

DRUGS (4)
  1. HUMIRA [Suspect]
     Indication: RHEUMATOID ARTHRITIS
     Route: 058
     Dates: start: 20080223, end: 20080616
  2. METHOTREXATE [Concomitant]
     Indication: DRUG USE FOR UNKNOWN INDICATION
  3. ETODOLAC [Concomitant]
     Indication: DRUG USE FOR UNKNOWN INDICATION
  4. NARINE [Concomitant]
     Indication: HYPERSENSITIVITY

REACTIONS (7)
  - DIARRHOEA [None]
  - HEPATIC ENZYME INCREASED [None]
  - HYPERSENSITIVITY [None]
  - JOINT STIFFNESS [None]
  - OROPHARYNGEAL PAIN [None]
  - RHEUMATOID ARTHRITIS [None]
  - SNEEZING [None]
